FAERS Safety Report 9431795 (Version 2)
Quarter: 2013Q4

REPORT INFORMATION
  Report Type: Spontaneous
  Country: US (occurrence: None)
  Receive Date: 20130726
  Receipt Date: 20131009
  Transmission Date: 20140711
  Serious: Yes (Other)
  Sender: FDA-Public Use
  Company Number: ACO_37524_2013

PATIENT
  Sex: Female

DRUGS (3)
  1. AMPYRA [Suspect]
     Indication: PRODUCT USED FOR UNKNOWN INDICATION
  2. COPAXONE [Concomitant]
  3. PANTOPRAZOLE SODIUM [Concomitant]

REACTIONS (3)
  - Pneumonia [None]
  - Rib fracture [None]
  - Fall [None]
